FAERS Safety Report 6020310-4 (Version None)
Quarter: 2008Q4

REPORT INFORMATION
  Report Type: 
  Country: None (occurrence: None)
  Receive Date: 20081226
  Receipt Date: 20081219
  Transmission Date: 20090506
  Serious: Yes (Hospitalization)
  Sender: FDA-Public Use
  Company Number: PHHO2008US14919

PATIENT
  Sex: Female

DRUGS (19)
  1. LETROZOLE [Suspect]
     Indication: BREAST CANCER METASTATIC
     Dosage: 2.5 MG, QD
     Route: 048
     Dates: start: 20060601
  2. ACETAMINOPHEN [Concomitant]
  3. ADVAIR DISKUS 250/50 [Concomitant]
  4. ALBUTEROL [Concomitant]
  5. FEXOFENADINE [Concomitant]
  6. AMLODIPINE [Concomitant]
  7. ASPIRIN [Concomitant]
  8. CALCIUM CITRATE [Concomitant]
  9. CLONAZEPAM [Concomitant]
  10. FISH OIL [Concomitant]
  11. ALENDRONATE SODIUM [Concomitant]
  12. VICODIN [Concomitant]
  13. FUROSEMIDE [Concomitant]
  14. MULTI-VITAMINS [Concomitant]
  15. OMEPRAZOLE [Concomitant]
  16. LATANOPROST [Concomitant]
  17. FLUTICASONE PROPIONATE [Concomitant]
  18. SALMETEROL [Concomitant]
  19. FEXOFENADINE HYDROCHLORIDE [Concomitant]

REACTIONS (14)
  - ABDOMINAL DISTENSION [None]
  - ABDOMINAL PAIN LOWER [None]
  - ABSCESS [None]
  - CHILLS [None]
  - COLITIS [None]
  - DIARRHOEA [None]
  - DIVERTICULUM [None]
  - GASTROINTESTINAL DISORDER [None]
  - HAEMATOCHEZIA [None]
  - MUSCLE SPASMS [None]
  - NAUSEA [None]
  - PYREXIA [None]
  - RECTAL HAEMORRHAGE [None]
  - VOMITING [None]
